FAERS Safety Report 7983857 (Version 4)
Quarter: 2013Q4

REPORT INFORMATION
  Report Type: Report from Study
  Country: DE (occurrence: DE)
  Receive Date: 20110609
  Receipt Date: 20131216
  Transmission Date: 20140711
  Serious: Yes (Hospitalization, Disabling, Other)
  Sender: FDA-Public Use
  Company Number: DE-BRISTOL-MYERS SQUIBB COMPANY-15792682

PATIENT
  Age: 73 Year
  Sex: Female
  Weight: 50 kg

DRUGS (1)
  1. YERVOY [Suspect]
     Indication: MALIGNANT MELANOMA
     Dosage: INT DEC10, RESTART 25MAY11?VIAL NO:219469?TOTAL DOSE 1200MG
     Route: 042
     Dates: start: 201009

REACTIONS (5)
  - Leukoencephalopathy [Not Recovered/Not Resolved]
  - Dementia [Not Recovered/Not Resolved]
  - Malignant neoplasm progression [Unknown]
  - Confusional state [Not Recovered/Not Resolved]
  - Disturbance in attention [Unknown]
